FAERS Safety Report 4778632-0 (Version None)
Quarter: 2005Q3

REPORT INFORMATION
  Report Type: 
  Country: None (occurrence: None)
  Receive Date: 20050922
  Receipt Date: 20050913
  Transmission Date: 20060218
  Serious: Yes (Life-Threatening, Hospitalization)
  Sender: FDA-Public Use
  Company Number: NO-2005-019300

PATIENT
  Age: 29 Year
  Sex: Female

DRUGS (2)
  1. SOTALOL HCL [Suspect]
     Dosage: 4.8 G,
  2. VERAPAMIL [Suspect]
     Dosage: 3.6 G,

REACTIONS (25)
  - BLOOD PH DECREASED [None]
  - BLOOD PRESSURE DECREASED [None]
  - BRADYCARDIA [None]
  - CARDIAC ARREST [None]
  - CIRCULATORY COLLAPSE [None]
  - COMA [None]
  - COMPARTMENT SYNDROME [None]
  - DRUG INTERACTION POTENTIATION [None]
  - ELECTROLYTE IMBALANCE [None]
  - HAEMODIALYSIS [None]
  - HYPERKALAEMIA [None]
  - HYPONATRAEMIA [None]
  - INTESTINAL HAEMORRHAGE [None]
  - LOSS OF CONSCIOUSNESS [None]
  - METABOLIC ACIDOSIS [None]
  - MYDRIASIS [None]
  - OVERDOSE [None]
  - PARALYSIS [None]
  - POISONING DELIBERATE [None]
  - PULSE PRESSURE DECREASED [None]
  - PUPIL FIXED [None]
  - RENAL FAILURE [None]
  - RESPIRATION ABNORMAL [None]
  - RHABDOMYOLYSIS [None]
  - THERAPEUTIC PRODUCT INEFFECTIVE [None]
